FAERS Safety Report 7703151-9 (Version None)
Quarter: 2011Q3

REPORT INFORMATION
  Report Type: 
  Country: None (occurrence: None)
  Receive Date: 20110823
  Receipt Date: 20110819
  Transmission Date: 20111222
  Serious: Yes (Other)
  Sender: FDA-Public Use
  Company Number: DE-PFIZER INC-2011193223

PATIENT
  Age: 50 Year
  Sex: Female

DRUGS (1)
  1. VARENICLINE TARTRATE [Suspect]
     Dosage: 0.5 MG, UNK
     Route: 048
     Dates: start: 20110803, end: 20110817

REACTIONS (3)
  - PYREXIA [None]
  - LEUKOPENIA [None]
  - THROMBOCYTOPENIA [None]
